FAERS Safety Report 8174756-9 (Version None)
Quarter: 2012Q1

REPORT INFORMATION
  Report Type: 
  Country: None (occurrence: None)
  Receive Date: 20120229
  Receipt Date: 20120206
  Transmission Date: 20120608
  Serious: Yes (Other)
  Sender: FDA-Public Use
  Company Number: PHHY2012FR014948

PATIENT
  Age: 31 Year
  Sex: Female

DRUGS (3)
  1. VALDOXAN [Suspect]
     Indication: DEPRESSION
     Dosage: 25 MG, QD
     Route: 048
     Dates: start: 20111201
  2. SEROQUEL [Suspect]
     Indication: ANXIETY
     Dates: start: 20111201, end: 20111204
  3. ALPRAZOLAM [Suspect]
     Indication: ANXIETY
     Dosage: 0.5 MG, BID

REACTIONS (3)
  - VERTIGO [None]
  - DISCOMFORT [None]
  - ASTHENIA [None]
